FAERS Safety Report 5626022-0 (Version None)
Quarter: 2008Q1

REPORT INFORMATION
  Report Type: 
  Country: None (occurrence: None)
  Receive Date: 20080214
  Receipt Date: 20080201
  Transmission Date: 20080703
  Serious: Yes (Hospitalization, Other)
  Sender: FDA-Public Use
  Company Number: US-BAYER-200714083BCC

PATIENT
  Age: 46 Year
  Sex: Female
  Weight: 68 kg

DRUGS (4)
  1. ALEVE [Suspect]
     Indication: ARTHRALGIA
     Dosage: TOTAL DAILY DOSE: 220 MG  UNIT DOSE: 220 MG
     Route: 048
     Dates: start: 20070101, end: 20071101
  2. STEROIDS [Concomitant]
     Dates: start: 20071121
  3. CALCIUM [Concomitant]
     Dates: start: 20071121
  4. VITAMINS [Concomitant]
     Dates: start: 20071121

REACTIONS (1)
  - HAEMOLYTIC ANAEMIA [None]
